FAERS Safety Report 7424045-2 (Version None)
Quarter: 2011Q2

REPORT INFORMATION
  Report Type: 
  Country: None (occurrence: None)
  Receive Date: 20110419
  Receipt Date: 20110318
  Transmission Date: 20111010
  Serious: Yes (Hospitalization, Other)
  Sender: FDA-Public Use
  Company Number: US-BAYER-2011-004423

PATIENT
  Age: 17 Year
  Sex: Female
  Weight: 56.689 kg

DRUGS (1)
  1. YAZ [Suspect]
     Indication: MENORRHAGIA
     Dosage: UNK
     Dates: start: 20070501, end: 20070801

REACTIONS (4)
  - PAIN [None]
  - CHOLECYSTECTOMY [None]
  - INJURY [None]
  - PULMONARY EMBOLISM [None]
